FAERS Safety Report 6144356-0 (Version None)
Quarter: 2009Q2

REPORT INFORMATION
  Report Type: 
  Country: None (occurrence: None)
  Receive Date: 20090401
  Receipt Date: 20090316
  Transmission Date: 20091009
  Serious: Yes (Other)
  Sender: FDA-Public Use
  Company Number: 8044234

PATIENT
  Age: 34 Year
  Sex: Female

DRUGS (11)
  1. LEVETIRACETAM [Suspect]
     Indication: PARTIAL SEIZURES
     Dosage: 500 MG 2/D
     Dates: start: 20041101, end: 20070201
  2. LEVETIRACETAM [Suspect]
     Indication: PARTIAL SEIZURES
     Dosage: 1000 MG 2/D
     Dates: start: 20070501
  3. LEVETIRACETAM [Suspect]
     Indication: PARTIAL SEIZURES
     Dosage: 2500 MG
  4. CARBAMAZEPINE [Suspect]
     Indication: PARTIAL SEIZURES
     Dosage: 200 MG 2/D
     Dates: start: 20041101, end: 20070201
  5. PROCARBAZINE [Concomitant]
  6. PROCARBAZINE [Concomitant]
  7. PROCARBAZINE [Concomitant]
  8. CCNU LOMUSTINE [Concomitant]
  9. CCNU LOMUSTINE [Concomitant]
  10. CCNU LOMUSTINE [Concomitant]
  11. LEVETIRACETAM [Suspect]
     Indication: MYOTONIA

REACTIONS (11)
  - ACTIVITIES OF DAILY LIVING IMPAIRED [None]
  - ASTHENIA [None]
  - FATIGUE [None]
  - HYPONATRAEMIA [None]
  - IMPAIRED WORK ABILITY [None]
  - LEUKOPENIA [None]
  - PARAESTHESIA [None]
  - PARAESTHESIA ORAL [None]
  - PARTIAL SEIZURES [None]
  - QUALITY OF LIFE DECREASED [None]
  - SPEECH DISORDER [None]
